FAERS Safety Report 9700871 (Version 1)
Quarter: 2013Q4

REPORT INFORMATION
  Report Type: Spontaneous
  Country: US (occurrence: US)
  Receive Date: 20131121
  Receipt Date: 20131121
  Transmission Date: 20140711
  Serious: No
  Sender: FDA-Public Use
  Company Number: US-PFIZER INC-2013328374

PATIENT
  Sex: Female

DRUGS (2)
  1. ADVIL [Suspect]
     Indication: BACK PAIN
     Dosage: TWO TABLET AT A TIME
     Route: 048
  2. ADVIL [Suspect]
     Dosage: TWO TABLETS THREE TIMES IN A DAY
     Route: 048

REACTIONS (1)
  - Fatigue [Unknown]
